FAERS Safety Report 22320295 (Version 1)
Quarter: 2023Q2

REPORT INFORMATION
  Report Type: Report from Study
  Country: US (occurrence: US)
  Receive Date: 20230515
  Receipt Date: 20230515
  Transmission Date: 20230721
  Serious: Yes (Hospitalization)
  Sender: FDA-Public Use
  Company Number: US-MYLANLABS-2023M1049602

PATIENT
  Sex: Male
  Weight: 97 kg

DRUGS (10)
  1. AMLODIPINE [Suspect]
     Active Substance: AMLODIPINE BESYLATE
     Indication: Product used for unknown indication
     Dosage: 5 MILLIGRAM
     Route: 048
     Dates: end: 20230417
  2. LENVIMA [Concomitant]
     Active Substance: LENVATINIB
     Indication: Renal cancer
     Dosage: 18 MILLIGRAM, QD
     Route: 048
     Dates: start: 20230217, end: 202303
  3. LENVIMA [Concomitant]
     Active Substance: LENVATINIB
     Dosage: 18 MILLIGRAM, QD
     Route: 048
     Dates: start: 202303, end: 202303
  4. LENVIMA [Concomitant]
     Active Substance: LENVATINIB
     Dosage: 14 MILLIGRAM, QD
     Route: 048
     Dates: start: 202303, end: 20230316
  5. LENVIMA [Concomitant]
     Active Substance: LENVATINIB
     Dosage: 14 MILLIGRAM, QD
     Route: 048
     Dates: start: 20230412
  6. CAPECITABINE [Concomitant]
     Active Substance: CAPECITABINE
     Dosage: 500 MILLIGRAM
     Route: 065
  7. LEVOTHYROXINE [Concomitant]
     Active Substance: LEVOTHYROXINE
     Dosage: 125 MICROGRAM
     Route: 065
  8. ATORVASTATIN CALCIUM [Concomitant]
     Active Substance: ATORVASTATIN CALCIUM
     Dosage: 20 MILLIGRAM
     Route: 065
  9. AFINITOR [Concomitant]
     Active Substance: EVEROLIMUS
     Dosage: UNK
     Route: 065
  10. INLYTA [Concomitant]
     Active Substance: AXITINIB
     Dosage: UNK
     Route: 065

REACTIONS (1)
  - Peripheral swelling [Unknown]
